FAERS Safety Report 10803185 (Version 3)
Quarter: 2015Q1

REPORT INFORMATION
  Report Type: Spontaneous
  Country: US (occurrence: US)
  Receive Date: 20150217
  Receipt Date: 20150226
  Transmission Date: 20150721
  Serious: Yes (Death, Hospitalization, Other)
  Sender: FDA-Public Use
  Company Number: US-JNJFOC-20150212034

PATIENT
  Age: 64 Year
  Sex: Male

DRUGS (1)
  1. IMBRUVICA [Suspect]
     Active Substance: IBRUTINIB
     Indication: CHRONIC LYMPHOCYTIC LEUKAEMIA
     Route: 048
     Dates: end: 201410

REACTIONS (4)
  - Death [Fatal]
  - Progressive multifocal leukoencephalopathy [Unknown]
  - Incorrect dose administered [Not Recovered/Not Resolved]
  - JC virus infection [Unknown]

NARRATIVE: CASE EVENT DATE: 201410
